FAERS Safety Report 20406981 (Version 3)
Quarter: 2022Q2

REPORT INFORMATION
  Report Type: Spontaneous
  Country: JP (occurrence: JP)
  Receive Date: 20220131
  Receipt Date: 20220614
  Transmission Date: 20220721
  Serious: No
  Sender: FDA-Public Use
  Company Number: JP-GLAXOSMITHKLINE-JP2022JPN012398

PATIENT

DRUGS (5)
  1. SOTROVIMAB [Suspect]
     Active Substance: SOTROVIMAB
     Indication: COVID-19
     Dosage: 500 MG
     Route: 041
     Dates: start: 20220121, end: 20220121
  2. FERROUS SULFATE [Suspect]
     Active Substance: FERROUS SULFATE
     Dosage: 105 MG/DAY
     Route: 048
     Dates: start: 20220113
  3. CALONAL [Suspect]
     Active Substance: ACETAMINOPHEN
     Dosage: PRN, WHEN HEADACHE OCCURRED
     Route: 048
  4. DOMIPHEN BROMIDE [Suspect]
     Active Substance: DOMIPHEN BROMIDE
     Dosage: 4 DF/DAY
     Dates: start: 20220113
  5. RITODRINE [Suspect]
     Active Substance: RITODRINE
     Dosage: 2 A/DAY
     Route: 041
     Dates: start: 20220120, end: 20220124

REACTIONS (2)
  - Exposure during pregnancy [Unknown]
  - Live birth [Unknown]
